FAERS Safety Report 5417068-6 (Version None)
Quarter: 2007Q3

REPORT INFORMATION
  Report Type: 
  Country: None (occurrence: None)
  Receive Date: 20070718
  Receipt Date: 20060803
  Transmission Date: 20080115
  Serious: Yes (Other)
  Sender: FDA-Public Use
  Company Number: 2006049025

PATIENT
  Age: 54 Year
  Sex: Female
  Weight: 56.6996 kg

DRUGS (1)
  1. CELEBREX [Suspect]
     Indication: BACK PAIN
     Dosage: 100 MG (100 MG, 1 IN 1 D)
     Dates: start: 19990309

REACTIONS (2)
  - ACUTE MYOCARDIAL INFARCTION [None]
  - FATIGUE [None]
